FAERS Safety Report 19125108 (Version 1)
Quarter: 2021Q2

REPORT INFORMATION
  Report Type: Spontaneous
  Country: US (occurrence: US)
  Receive Date: 20210412
  Receipt Date: 20210412
  Transmission Date: 20210717
  Serious: No
  Sender: FDA-Public Use
  Company Number: US-BIOMARINAP-US-2021-135803

PATIENT
  Age: 11 Year
  Sex: Male
  Weight: 50.9 kg

DRUGS (2)
  1. KUVAN [Suspect]
     Active Substance: SAPROPTERIN DIHYDROCHLORIDE
     Dosage: 1000 MILLIGRAM, QD
     Route: 048
  2. KUVAN [Suspect]
     Active Substance: SAPROPTERIN DIHYDROCHLORIDE
     Indication: PHENYLKETONURIA
     Dosage: 500 MILLIGRAM, QD
     Route: 048
     Dates: start: 201805

REACTIONS (1)
  - Weight increased [Unknown]
